FAERS Safety Report 6385988-4 (Version None)
Quarter: 2009Q4

REPORT INFORMATION
  Report Type: 
  Country: None (occurrence: None)
  Receive Date: 20091002
  Receipt Date: 20081212
  Transmission Date: 20100525
  Serious: No
  Sender: FDA-Public Use
  Company Number: US-ASTRAZENECA-2008UW23915

PATIENT
  Age: 78 Year
  Sex: Female
  Weight: 71.2 kg

DRUGS (5)
  1. ARIMIDEX [Suspect]
     Indication: OSTEITIS DEFORMANS
     Route: 048
     Dates: start: 20050501
  2. NEXIUM [Concomitant]
     Route: 048
  3. RAMIPRIL [Concomitant]
  4. ARTHRITIS CREAM [Concomitant]
  5. TYLENOL (CAPLET) [Concomitant]
     Dosage: PRN

REACTIONS (7)
  - ARTHRALGIA [None]
  - CHEST PAIN [None]
  - ILL-DEFINED DISORDER [None]
  - LUNG NEOPLASM [None]
  - MOBILITY DECREASED [None]
  - RENAL FUSION ANOMALY [None]
  - TRAUMATIC LIVER INJURY [None]
